FAERS Safety Report 14635687 (Version 4)
Quarter: 2018Q2

REPORT INFORMATION
  Report Type: Spontaneous
  Country: ES (occurrence: ES)
  Receive Date: 20180314
  Receipt Date: 20180427
  Transmission Date: 20180711
  Serious: Yes (Death, Hospitalization)
  Sender: FDA-Public Use
  Company Number: ES-AUROBINDO-AUR-APL-2018-013623

PATIENT
  Age: 72 Year
  Sex: Female

DRUGS (28)
  1. MIRTAZAPINE FILM-COATED TABLET [Suspect]
     Active Substance: MIRTAZAPINE
     Indication: DEPRESSION
     Dosage: UNK
     Route: 065
  2. MIRTAZAPINE FILM-COATED TABLET [Suspect]
     Active Substance: MIRTAZAPINE
     Dosage: ()
     Route: 065
  3. FLUOXETINE [Suspect]
     Active Substance: FLUOXETINE HYDROCHLORIDE
     Dosage: UNK ()
     Route: 065
  4. LUDIOMIL [Suspect]
     Active Substance: MAPROTILINE HYDROCHLORIDE
     Dosage: 18.75 MILLIGRAM, TWO TIMES A DAY (Q12H)
     Route: 048
  5. BRINTELLIX [Suspect]
     Active Substance: VORTIOXETINE HYDROBROMIDE
     Dosage: 10 MG, QD
     Route: 065
  6. FLUOXETINE [Suspect]
     Active Substance: FLUOXETINE HYDROCHLORIDE
     Indication: DEPRESSION
     Dosage: UNK ()
     Route: 065
  7. AMITRIPTYLINE [Suspect]
     Active Substance: AMITRIPTYLINE
     Indication: DEPRESSION
     Dosage: UNK
     Route: 065
  8. BRINTELLIX [Suspect]
     Active Substance: VORTIOXETINE HYDROBROMIDE
     Dosage: 10 MG, QD
     Route: 065
  9. ALPRAZOLAM. [Suspect]
     Active Substance: ALPRAZOLAM
     Indication: PRODUCT USED FOR UNKNOWN INDICATION
     Dosage: 1/2-1/2-1 || DOSIS UNIDAD FRECUENCIA: 1 MG-MILIGRAMOS || UNIDAD DE FRECUENCIA: 1 D?A
     Route: 048
     Dates: start: 201404
  10. FLUOXETINE [Suspect]
     Active Substance: FLUOXETINE HYDROCHLORIDE
     Dosage: UNK ()
     Route: 065
  11. LUDIOMIL [Suspect]
     Active Substance: MAPROTILINE HYDROCHLORIDE
     Indication: DEPRESSION
     Dosage: 75 MG, UNK (1/2-0-1/2)
     Route: 048
     Dates: start: 201404, end: 201404
  12. ASENAPINE [Suspect]
     Active Substance: ASENAPINE
     Dosage: ()
     Route: 048
  13. ASENAPINE [Suspect]
     Active Substance: ASENAPINE
     Dosage: ()
     Route: 048
  14. MIRTAZAPINE FILM-COATED TABLET [Suspect]
     Active Substance: MIRTAZAPINE
     Dosage: UNK ()
     Route: 065
  15. LUDIOMIL [Suspect]
     Active Substance: MAPROTILINE HYDROCHLORIDE
     Dosage: 37.5 MG, UNK
     Route: 065
  16. AMITRIPTYLINE [Suspect]
     Active Substance: AMITRIPTYLINE
     Dosage: ()
     Route: 065
  17. ASENAPINE [Suspect]
     Active Substance: ASENAPINE
     Indication: DEPRESSION
     Dosage: ()
     Route: 065
  18. FLUOXETINE [Suspect]
     Active Substance: FLUOXETINE HYDROCHLORIDE
     Dosage: UNK ()
     Route: 065
  19. AMITRIPTYLINE [Suspect]
     Active Substance: AMITRIPTYLINE
     Dosage: ()
     Route: 065
  20. BRINTELLIX [Suspect]
     Active Substance: VORTIOXETINE HYDROBROMIDE
     Indication: DEPRESSION
     Dosage: 5 MG, 1 VEZ AL D?A || DOSIS UNIDAD FRECUENCIA: 5 MG-MILIGRAMOS || DOSIS POR TOMA: 5 MG-MILIGRAMOS...
     Route: 048
     Dates: start: 20160310, end: 20160402
  21. BRINTELLIX [Suspect]
     Active Substance: VORTIOXETINE HYDROBROMIDE
     Dosage: 10 MG, QD
     Route: 065
  22. BRINTELLIX [Suspect]
     Active Substance: VORTIOXETINE HYDROBROMIDE
     Dosage: 10 MG, QD
     Route: 065
  23. MIRTAZAPINE FILM-COATED TABLET [Suspect]
     Active Substance: MIRTAZAPINE
     Dosage: ()
     Route: 065
  24. BRINTELLIX [Suspect]
     Active Substance: VORTIOXETINE HYDROBROMIDE
     Dosage: 10 MG, QD
     Route: 065
  25. ASENAPINE [Suspect]
     Active Substance: ASENAPINE
     Indication: DEPRESSION
     Dosage: UNK
     Route: 065
  26. MIRTAZAPINE FILM-COATED TABLET [Suspect]
     Active Substance: MIRTAZAPINE
     Dosage: ()
     Route: 065
  27. FLUOXETINE [Suspect]
     Active Substance: FLUOXETINE HYDROCHLORIDE
     Indication: DEPRESSION
     Dosage: UNK
     Route: 065
  28. AMITRIPTYLINE [Suspect]
     Active Substance: AMITRIPTYLINE
     Indication: DEPRESSION
     Dosage: ()
     Route: 065

REACTIONS (9)
  - Polydipsia [Fatal]
  - Respiration abnormal [Fatal]
  - Cerebrovascular accident [Fatal]
  - Embolic stroke [Fatal]
  - Cardiac arrest [Fatal]
  - Hyponatraemia [Fatal]
  - Depressed level of consciousness [Fatal]
  - Aspiration [Fatal]
  - Seizure [Fatal]

NARRATIVE: CASE EVENT DATE: 201604
